FAERS Safety Report 12772878 (Version 1)
Quarter: 2016Q3

REPORT INFORMATION
  Report Type: Spontaneous
  Country: DE (occurrence: DE)
  Receive Date: 20160922
  Receipt Date: 20160922
  Transmission Date: 20161109
  Serious: Yes (Other)
  Sender: FDA-Public Use
  Company Number: DE-SAOL THERAPEUTICS-2016SAO00676

PATIENT
  Sex: Male

DRUGS (1)
  1. BACLOFEN. [Suspect]
     Active Substance: BACLOFEN
     Dosage: 1050 ?G, UNK
     Route: 037

REACTIONS (2)
  - Muscle spasticity [Recovered/Resolved]
  - Therapy non-responder [Recovered/Resolved]
